FAERS Safety Report 16797465 (Version 1)
Quarter: 2019Q3

REPORT INFORMATION
  Report Type: Spontaneous
  Country: BE (occurrence: BE)
  Receive Date: 20190912
  Receipt Date: 20190912
  Transmission Date: 20191005
  Serious: Yes (Other)
  Sender: FDA-Public Use
  Company Number: BE-TEVA-2019-BE-1105491

PATIENT
  Sex: Female

DRUGS (2)
  1. IBUPROFEN. [Suspect]
     Active Substance: IBUPROFEN
     Route: 065
  2. BRONCHOSEDAL CODEINE [Suspect]
     Active Substance: CODEINE PHOSPHATE
     Route: 048

REACTIONS (3)
  - Localised oedema [Unknown]
  - Blister [Unknown]
  - Rash [Unknown]
